FAERS Safety Report 8730958 (Version 2)
Quarter: 2012Q4

REPORT INFORMATION
  Report Type: Spontaneous
  Country: US (occurrence: None)
  Receive Date: 20120730
  Receipt Date: 20120809
  Transmission Date: 20130627
  Serious: Yes (Hospitalization)
  Sender: FDA-Public Use
  Company Number: 2011028719

PATIENT
  Age: 52 Year
  Sex: Female
  Weight: 61.24 kg

DRUGS (13)
  1. HIZENTRA [Suspect]
     Indication: IMMUNODEFICIENCY COMMON VARIABLE
     Dosage: SEE IMAGE
     Route: 058
  2. HIZENTRA [Suspect]
  3. BUPROPION HYDROCHLORIDE [Concomitant]
  4. ADVAIR HFA [Concomitant]
  5. SPIRIVA [Concomitant]
  6. NEURONTIN [Concomitant]
  7. ALLEGRA [Concomitant]
  8. TRAMADOL HYDROCHLORIDE [Concomitant]
  9. BENAZEPRIL HYDROCHLORIDE [Concomitant]
  10. DILTIAZEM [Concomitant]
  11. TESSALON [Concomitant]
  12. PROPRANOLOL [Concomitant]
  13. DICYCLOMINE HYDROCHLORIDE [Concomitant]

REACTIONS (19)
  - PYREXIA [None]
  - ERYTHEMA [None]
  - DYSPNOEA [None]
  - ARRHYTHMIA [None]
  - SWELLING [None]
  - HEART RATE DECREASED [None]
  - VIRAL INFECTION [None]
  - FALL [None]
  - CONTUSION [None]
  - ACCIDENT [None]
  - URTICARIA [None]
  - HEADACHE [None]
  - RASH [None]
  - SKIN DISORDER [None]
  - PRURITUS [None]
  - CHILLS [None]
  - ASTHMA [None]
  - NAUSEA [None]
  - CHEST DISCOMFORT [None]
